FAERS Safety Report 6849225-6 (Version None)
Quarter: 2010Q3

REPORT INFORMATION
  Report Type: 
  Country: None (occurrence: None)
  Receive Date: 20100716
  Receipt Date: 20071207
  Transmission Date: 20110219
  Serious: No
  Sender: FDA-Public Use
  Company Number: US-PFIZER INC-2007081222

PATIENT
  Sex: Female
  Weight: 86.4 kg

DRUGS (9)
  1. CHANTIX [Suspect]
     Indication: SMOKING CESSATION THERAPY
     Route: 048
     Dates: start: 20070910
  2. LOPRESSOR [Concomitant]
  3. ALL OTHER THERAPEUTIC PRODUCTS [Concomitant]
  4. PROTONIX [Concomitant]
  5. CYMBALTA [Concomitant]
  6. LIPITOR [Concomitant]
  7. TARKA [Concomitant]
  8. FOLIC ACID [Concomitant]
  9. INSULIN [Concomitant]

REACTIONS (2)
  - ABNORMAL DREAMS [None]
  - DRUG INEFFECTIVE [None]
